FAERS Safety Report 8295880-6 (Version None)
Quarter: 2012Q2

REPORT INFORMATION
  Report Type: 
  Country: None (occurrence: None)
  Receive Date: 20120418
  Receipt Date: 20120408
  Transmission Date: 20120825
  Serious: Yes (Other)
  Sender: FDA-Public Use
  Company Number: US-ROCHE-1058055

PATIENT
  Sex: Female
  Weight: 72.64 kg

DRUGS (4)
  1. MABTHERA [Suspect]
     Indication: NON-HODGKIN'S LYMPHOMA
     Route: 042
  2. SYNTHROID [Concomitant]
     Indication: THYROID DISORDER
     Route: 048
  3. DEXAMETHASONE [Concomitant]
     Indication: INFLAMMATION
     Route: 065
  4. VICODIN [Concomitant]
     Indication: PAIN
     Route: 048

REACTIONS (4)
  - STOMATITIS [None]
  - BACK PAIN [None]
  - PAIN IN EXTREMITY [None]
  - MUSCLE SPASMS [None]
